FAERS Safety Report 13739665 (Version 3)
Quarter: 2018Q3

REPORT INFORMATION
  Report Type: Report from Study
  Country: None (occurrence: US)
  Receive Date: 20170710
  Receipt Date: 20180710
  Transmission Date: 20181010
  Serious: Yes (Hospitalization, Other)
  Sender: FDA-Public Use
  Company Number: US-ABBVIE-17K-163-2029683-00

PATIENT
  Sex: Female

DRUGS (1)
  1. HUMIRA [Suspect]
     Active Substance: ADALIMUMAB
     Indication: CROHN^S DISEASE
     Route: 058
     Dates: end: 2018

REACTIONS (10)
  - Vomiting [Unknown]
  - Feeling abnormal [Unknown]
  - Post procedural discharge [Not Recovered/Not Resolved]
  - Pelvic abscess [Unknown]
  - Infection [Unknown]
  - Intestinal resection [Recovering/Resolving]
  - Post procedural sepsis [Unknown]
  - Decreased activity [Unknown]
  - Incision site pain [Unknown]
  - Fistula [Unknown]

NARRATIVE: CASE EVENT DATE: 2017
